FAERS Safety Report 18402276 (Version 1)
Quarter: 2020Q4

REPORT INFORMATION
  Report Type: Spontaneous
  Country: FR (occurrence: FR)
  Receive Date: 20201019
  Receipt Date: 20201019
  Transmission Date: 20210114
  Serious: Yes (Hospitalization)
  Sender: FDA-Public Use
  Company Number: FR-PFIZER INC-2020401718

PATIENT
  Age: 55 Year
  Sex: Female
  Weight: 78 kg

DRUGS (4)
  1. GEMZAR [Suspect]
     Active Substance: GEMCITABINE HYDROCHLORIDE
     Indication: SMALL CELL LUNG CANCER METASTATIC
     Dosage: 1000 MG/M2 (C1J1 ON 31/08)
     Route: 042
     Dates: start: 20200831, end: 20200831
  2. PACLITAXEL. [Suspect]
     Active Substance: PACLITAXEL
     Indication: SMALL CELL LUNG CANCER METASTATIC
     Dosage: 175 MG/M2 (CYCLE1, DAY 1 ON 31AUG2020)
     Route: 042
     Dates: start: 20200831, end: 20200831
  3. ZARZIO [Suspect]
     Active Substance: FILGRASTIM
     Indication: SMALL CELL LUNG CANCER METASTATIC
     Dosage: 5 UG/KG, 1X/DAY
     Route: 058
     Dates: start: 20200901, end: 20200903
  4. MORPHINE [Concomitant]
     Active Substance: MORPHINE
     Indication: PAIN
     Dosage: UNK
     Dates: start: 20200907

REACTIONS (1)
  - Oedema peripheral [Recovered/Resolved]

NARRATIVE: CASE EVENT DATE: 20200909
